FAERS Safety Report 11838157 (Version 1)
Quarter: 2015Q4

REPORT INFORMATION
  Report Type: Spontaneous
  Country: US (occurrence: US)
  Receive Date: 20151215
  Receipt Date: 20151215
  Transmission Date: 20160305
  Serious: No
  Sender: FDA-Public Use
  Company Number: US-GLAXOSMITHKLINE-US2015GSK163569

PATIENT
  Age: 51 Year
  Sex: Female
  Weight: 62.59 kg

DRUGS (2)
  1. ADVIL LIQUIGELS [Suspect]
     Active Substance: IBUPROFEN
     Indication: PLANTAR FASCIITIS
     Dosage: 1 DF, BID
     Route: 048
     Dates: start: 20151030, end: 20151030
  2. ZANTAC [Suspect]
     Active Substance: RANITIDINE HYDROCHLORIDE
     Indication: GASTROOESOPHAGEAL REFLUX DISEASE
     Dosage: 150 MG, PRN
     Route: 048
     Dates: start: 20151030, end: 20151031

REACTIONS (7)
  - Insomnia [Recovered/Resolved]
  - Drug effect incomplete [Unknown]
  - Weight decreased [Recovered/Resolved]
  - Abdominal pain upper [Recovering/Resolving]
  - Abdominal pain [Recovered/Resolved]
  - Condition aggravated [Unknown]
  - Gastrooesophageal reflux disease [Recovering/Resolving]

NARRATIVE: CASE EVENT DATE: 20151030
